FAERS Safety Report 21369237 (Version 1)
Quarter: 2022Q3

REPORT INFORMATION
  Report Type: Spontaneous
  Country: US (occurrence: None)
  Receive Date: 20220922
  Receipt Date: 20220922
  Transmission Date: 20221027
  Serious: Yes (Other)
  Sender: FDA-Public Use
  Company Number: None

PATIENT
  Age: 78 Year
  Sex: Male
  Weight: 85.5 kg

DRUGS (14)
  1. EVUSHELD [Suspect]
     Active Substance: CILGAVIMAB\TIXAGEVIMAB
     Indication: Product used for unknown indication
     Dosage: OTHER ROUTE : INJECTED INTO CHEEKS OF BUTT;?
     Route: 050
     Dates: start: 20220826, end: 20220826
  2. TACROLIMUS [Concomitant]
     Active Substance: TACROLIMUS
  3. LAMIVUDINE [Concomitant]
     Active Substance: LAMIVUDINE
  4. LATANOPROST [Concomitant]
     Active Substance: LATANOPROST
  5. ATORVASTATIN [Concomitant]
     Active Substance: ATORVASTATIN
  6. TAMSULOSIN [Concomitant]
     Active Substance: TAMSULOSIN
  7. pantroprazole [Concomitant]
  8. SOTALOL [Concomitant]
     Active Substance: SOTALOL
  9. WARFARIN [Concomitant]
     Active Substance: WARFARIN
  10. ALPRAZOLAM [Concomitant]
     Active Substance: ALPRAZOLAM
  11. ACETAMINOPHEN [Concomitant]
     Active Substance: ACETAMINOPHEN
  12. ACETAMINOPHEN [Concomitant]
     Active Substance: ACETAMINOPHEN
  13. hydrochlorothiazde [Concomitant]
  14. Immune Globulin B [Concomitant]

REACTIONS (3)
  - Pain in extremity [None]
  - Peripheral swelling [None]
  - Gait disturbance [None]

NARRATIVE: CASE EVENT DATE: 20220916
